FAERS Safety Report 13760060 (Version 1)
Quarter: 2017Q3

REPORT INFORMATION
  Report Type: Spontaneous
  Country: JP (occurrence: JP)
  Receive Date: 20170717
  Receipt Date: 20170717
  Transmission Date: 20171127
  Serious: Yes (Hospitalization)
  Sender: FDA-Public Use
  Company Number: PHJP2017JP018065

PATIENT
  Age: 59 Year
  Sex: Female
  Weight: 56 kg

DRUGS (3)
  1. GILENYA [Suspect]
     Active Substance: FINGOLIMOD HYDROCHLORIDE
     Indication: MULTIPLE SCLEROSIS
     Dosage: 0.5 MG, QD
     Route: 048
     Dates: start: 20170510
  2. NEXIUM [Concomitant]
     Active Substance: ESOMEPRAZOLE MAGNESIUM
     Indication: GASTROOESOPHAGEAL REFLUX DISEASE
     Dosage: 20 MG, QD
     Route: 048
     Dates: start: 20170428
  3. BONALON [Concomitant]
     Active Substance: ALENDRONATE SODIUM
     Indication: OSTEOPOROSIS
     Dosage: 35 MG, QMO
     Route: 048
     Dates: start: 20170430

REACTIONS (8)
  - Multiple sclerosis relapse [Unknown]
  - Paresis [Unknown]
  - Hypoaesthesia [Unknown]
  - Cognitive disorder [Recovering/Resolving]
  - Language disorder [Unknown]
  - Amnesia [Unknown]
  - Dyscalculia [Unknown]
  - Disorientation [Unknown]

NARRATIVE: CASE EVENT DATE: 20170526
